FAERS Safety Report 19894759 (Version 1)
Quarter: 2021Q3

REPORT INFORMATION
  Report Type: Spontaneous
  Country: NL (occurrence: NL)
  Receive Date: 20210928
  Receipt Date: 20210928
  Transmission Date: 20211014
  Serious: Yes (Death)
  Sender: FDA-Public Use
  Company Number: NL-ROCHE-2917239

PATIENT
  Age: 55 Year
  Sex: Female
  Weight: 87 kg

DRUGS (10)
  1. GLUCOSE [Concomitant]
     Active Substance: DEXTROSE
     Dosage: 5ML/UUR
  2. ROCURONIUM [Concomitant]
     Active Substance: ROCURONIUM BROMIDE
     Dosage: KORTDUREND 80MG
  3. MIDAZOLAM. [Concomitant]
     Active Substance: MIDAZOLAM
     Dosage: 50MG/50ML
  4. DEXAMETHASONE. [Concomitant]
     Active Substance: DEXAMETHASONE
     Dosage: 1X1ST
  5. TOCILIZUMAB. [Suspect]
     Active Substance: TOCILIZUMAB
     Indication: COVID-19
     Dosage: 700MG I.V. EENMALIG
     Route: 042
     Dates: start: 20210825
  6. NORADRENALINE [Concomitant]
     Active Substance: NOREPINEPHRINE
     Dosage: 10MG/50ML
  7. PROPOFOL. [Concomitant]
     Active Substance: PROPOFOL
     Dosage: 80MG/8ML
  8. PARACETAMOL [Concomitant]
     Active Substance: ACETAMINOPHEN
     Dosage: ZN 4X PER DAG 2ST
  9. CEFTRIAXONE. [Concomitant]
     Active Substance: CEFTRIAXONE
     Dosage: 2000MG/20ML
     Dates: start: 20210826
  10. FENTANYL. [Concomitant]
     Active Substance: FENTANYL
     Dosage: 100UG/2ML

REACTIONS (2)
  - Pancreatitis [Fatal]
  - Off label use [Unknown]

NARRATIVE: CASE EVENT DATE: 20210829
